FAERS Safety Report 4750488-1 (Version None)
Quarter: 2005Q3

REPORT INFORMATION
  Report Type: 
  Country: None (occurrence: None)
  Receive Date: 20050823
  Receipt Date: 20050815
  Transmission Date: 20060218
  Serious: Yes (Life-Threatening)
  Sender: FDA-Public Use
  Company Number: GB-GLAXOSMITHKLINE-B0390755A

PATIENT
  Age: 47 Year
  Sex: Female

DRUGS (5)
  1. SALMETEROL [Suspect]
     Indication: ASTHMA
     Dosage: 2PUFF TWICE PER DAY
     Dates: start: 20050713, end: 20050720
  2. FLUTICASONE [Concomitant]
     Indication: ASTHMA
     Dosage: 100MCG TWICE PER DAY
     Dates: start: 20030101
  3. CALCICHEW D3 [Concomitant]
     Indication: HYPOCALCAEMIA
     Route: 048
     Dates: start: 20050310
  4. ALBUTEROL SULFATE HFA [Concomitant]
     Indication: ASTHMA
     Dosage: 2PUFF FOUR TIMES PER DAY
  5. ASILONE [Concomitant]
     Indication: DYSPEPSIA
     Dosage: 5ML AS REQUIRED
     Route: 048

REACTIONS (5)
  - CHILLS [None]
  - FACE OEDEMA [None]
  - RASH PRURITIC [None]
  - TONGUE OEDEMA [None]
  - URTICARIA [None]
